FAERS Safety Report 26086994 (Version 1)
Quarter: 2025Q4

REPORT INFORMATION
  Report Type: Spontaneous
  Country: EU (occurrence: EU)
  Receive Date: 20251125
  Receipt Date: 20251125
  Transmission Date: 20260117
  Serious: Yes (Other)
  Sender: RANBAXY
  Company Number: EU-AFSSAPS-GR2025001230

PATIENT
  Age: 56 Year
  Sex: Female
  Weight: 55.3 kg

DRUGS (1)
  1. AZITHROMYCIN [Suspect]
     Active Substance: AZITHROMYCIN
     Indication: Impaired gastric emptying
     Dosage: 250 MILLIGRAM, DAILY
     Route: 048
     Dates: start: 20250613, end: 20250619

REACTIONS (1)
  - Hepatic cytolysis [Recovering/Resolving]

NARRATIVE: CASE EVENT DATE: 20250615
